FAERS Safety Report 9305354 (Version 2)
Quarter: 2013Q2

REPORT INFORMATION
  Report Type: Spontaneous
  Country: US (occurrence: US)
  Receive Date: 20130523
  Receipt Date: 20130625
  Transmission Date: 20140414
  Serious: Yes (Hospitalization)
  Sender: FDA-Public Use
  Company Number: US-PFIZER INC-2013157309

PATIENT
  Age: 57 Year
  Sex: Female
  Weight: 87 kg

DRUGS (2)
  1. CHANTIX [Suspect]
     Indication: SMOKING CESSATION THERAPY
     Dosage: UNK
  2. ADVAIR [Concomitant]
     Dosage: UNK

REACTIONS (3)
  - Pneumonia bacterial [Unknown]
  - Oxygen saturation decreased [Unknown]
  - Full blood count increased [Unknown]
